FAERS Safety Report 7463317-2 (Version None)
Quarter: 2011Q2

REPORT INFORMATION
  Report Type: 
  Country: None (occurrence: None)
  Receive Date: 20110506
  Receipt Date: 20110427
  Transmission Date: 20111010
  Serious: Yes (Other)
  Sender: FDA-Public Use
  Company Number: GB-WATSON-2011-04897

PATIENT
  Age: 62 Year
  Sex: Female

DRUGS (1)
  1. LAMOTRIGINE [Suspect]
     Indication: EPILEPSY
     Dosage: LONG-TERM
     Dates: start: 20050101

REACTIONS (1)
  - ORAL HAIRY LEUKOPLAKIA [None]
